FAERS Safety Report 20844598 (Version 3)
Quarter: 2022Q2

REPORT INFORMATION
  Report Type: Spontaneous
  Country: US (occurrence: US)
  Receive Date: 20220518
  Receipt Date: 20220608
  Transmission Date: 20220720
  Serious: No
  Sender: FDA-Public Use
  Company Number: US-PFIZER INC-202200708918

PATIENT
  Age: 68 Year
  Sex: Female
  Weight: 50.802 kg

DRUGS (1)
  1. PAXLOVID [Suspect]
     Active Substance: NIRMATRELVIR\RITONAVIR
     Indication: COVID-19 treatment
     Dosage: 3 DF, 2X/DAY
     Route: 048
     Dates: start: 20220414, end: 20220419

REACTIONS (10)
  - COVID-19 [Unknown]
  - Disease recurrence [Unknown]
  - Abdominal discomfort [Recovering/Resolving]
  - Gastrointestinal disorder [Recovered/Resolved]
  - Diarrhoea [Recovering/Resolving]
  - Headache [Recovered/Resolved]
  - Myalgia [Recovering/Resolving]
  - Dysgeusia [Recovered/Resolved]
  - Feeling abnormal [Unknown]
  - Neuralgia [Unknown]

NARRATIVE: CASE EVENT DATE: 20220415
